FAERS Safety Report 13360893 (Version 1)
Quarter: 2017Q1

REPORT INFORMATION
  Report Type: Report from Study
  Country: US (occurrence: US)
  Receive Date: 20170322
  Receipt Date: 20170322
  Transmission Date: 20170429
  Serious: Yes (Hospitalization)
  Sender: FDA-Public Use
  Company Number: US-ELI_LILLY_AND_COMPANY-US201703003979

PATIENT
  Sex: Female

DRUGS (1)
  1. FORTEO [Suspect]
     Active Substance: TERIPARATIDE
     Indication: OSTEOPOROSIS
     Dosage: UNK, UNKNOWN
     Route: 065
     Dates: start: 2015

REACTIONS (11)
  - Frequent bowel movements [Unknown]
  - Hyponatraemia [Unknown]
  - Pneumonia [Unknown]
  - Malaise [Unknown]
  - Pulmonary mass [Unknown]
  - Heart rate irregular [Unknown]
  - Emphysema [Unknown]
  - Peripheral swelling [Unknown]
  - Oxygen saturation decreased [Unknown]
  - Drug dose omission [Unknown]
  - Pollakiuria [Unknown]
